FAERS Safety Report 16514624 (Version 1)
Quarter: 2019Q3

REPORT INFORMATION
  Report Type: Spontaneous
  Country: US (occurrence: US)
  Receive Date: 20190702
  Receipt Date: 20190702
  Transmission Date: 20191004
  Serious: No
  Sender: FDA-Public Use
  Company Number: US-TEVA-2019-US-1068001

PATIENT
  Sex: Female

DRUGS (1)
  1. AZITHROMYCIN TABLETS [Suspect]
     Active Substance: AZITHROMYCIN ANHYDROUS
     Indication: LYME DISEASE
     Route: 065

REACTIONS (3)
  - Abdominal discomfort [Unknown]
  - Onychomycosis [Unknown]
  - Diarrhoea [Unknown]
